FAERS Safety Report 7051147-5 (Version None)
Quarter: 2010Q4

REPORT INFORMATION
  Report Type: 
  Country: None (occurrence: None)
  Receive Date: 20101019
  Receipt Date: 20101008
  Transmission Date: 20110411
  Serious: Yes (Other)
  Sender: FDA-Public Use
  Company Number: US-RB-014271-10

PATIENT
  Age: 63 Year
  Sex: Male

DRUGS (1)
  1. MUCINEX D [Suspect]
     Dosage: PRODUCT TAKEN FOR ABOUT A WEEK.
     Route: 048
     Dates: start: 20100101

REACTIONS (2)
  - EPISTAXIS [None]
  - HAEMOPTYSIS [None]
